FAERS Safety Report 6213206-6 (Version None)
Quarter: 2009Q2

REPORT INFORMATION
  Report Type: 
  Country: None (occurrence: None)
  Receive Date: 20090602
  Receipt Date: 20090602
  Transmission Date: 20091009
  Serious: Yes (Other)
  Sender: FDA-Public Use
  Company Number: None

PATIENT
  Age: 59 Year
  Sex: Female
  Weight: 70.7611 kg

DRUGS (2)
  1. EFFEXOR XR [Suspect]
     Indication: DEPRESSION
     Dates: start: 19990101, end: 20090601
  2. WELLBUTRIN [Suspect]
     Indication: DEPRESSION
     Dates: start: 19990101, end: 20090601

REACTIONS (6)
  - ASTHENIA [None]
  - DRUG WITHDRAWAL SYNDROME [None]
  - INSOMNIA [None]
  - RESTLESS LEGS SYNDROME [None]
  - TONGUE DISORDER [None]
  - TREMOR [None]
